FAERS Safety Report 6489857-0 (Version None)
Quarter: 2009Q4

REPORT INFORMATION
  Report Type: 
  Country: None (occurrence: None)
  Receive Date: 20091211
  Receipt Date: 20091130
  Transmission Date: 20100525
  Serious: Yes (Hospitalization)
  Sender: FDA-Public Use
  Company Number: MX-ELI_LILLY_AND_COMPANY-MX200912000353

PATIENT
  Age: 29 Year
  Sex: Male

DRUGS (2)
  1. CIALIS [Suspect]
     Indication: ERECTILE DYSFUNCTION
     Dosage: 20 MG, WEEKLY (1/W)
     Route: 048
     Dates: start: 20090501, end: 20090101
  2. CIALIS [Suspect]
     Dosage: 20 MG, UNKNOWN
     Route: 048

REACTIONS (2)
  - HEAD INJURY [None]
  - LOSS OF CONSCIOUSNESS [None]
